FAERS Safety Report 19092609 (Version 1)
Quarter: 2021Q2

REPORT INFORMATION
  Report Type: Spontaneous
  Country: IN (occurrence: IN)
  Receive Date: 20210405
  Receipt Date: 20210405
  Transmission Date: 20210717
  Serious: Yes (Hospitalization)
  Sender: FDA-Public Use
  Company Number: IN-SEBELA IRELAND LIMITED-2021SEB00041

PATIENT
  Age: 28 Year
  Sex: Female

DRUGS (1)
  1. ITRACONAZOLE. [Suspect]
     Active Substance: ITRACONAZOLE
     Indication: DERMATOPHYTOSIS
     Dosage: 200 MG, 1X/DAY; 5 MG/KG/DAY
     Route: 065

REACTIONS (1)
  - Hypertension [Unknown]
